FAERS Safety Report 16749698 (Version 1)
Quarter: 2019Q3

REPORT INFORMATION
  Report Type: Spontaneous
  Country: BR (occurrence: BR)
  Receive Date: 20190828
  Receipt Date: 20190828
  Transmission Date: 20191005
  Serious: Yes (Other)
  Sender: FDA-Public Use
  Company Number: PHHY2019BR200173

PATIENT
  Age: 30 Year
  Sex: Female

DRUGS (5)
  1. VANCOMYCIN [Concomitant]
     Active Substance: VANCOMYCIN
     Indication: EPIDERMOLYSIS BULLOSA
     Dosage: UNK
     Route: 065
  2. MICACIN [Concomitant]
     Active Substance: MICRONOMICIN SULFATE
     Indication: EPIDERMOLYSIS BULLOSA
     Dosage: UNK
     Route: 065
  3. PREDNISONE. [Suspect]
     Active Substance: PREDNISONE
     Indication: EPIDERMOLYSIS BULLOSA
     Route: 065
  4. VANCOMYCIN [Concomitant]
     Active Substance: VANCOMYCIN
     Indication: INFECTION
  5. MICACIN [Concomitant]
     Active Substance: MICRONOMICIN SULFATE
     Indication: INFECTION

REACTIONS (3)
  - Cataract [Unknown]
  - Marjolin^s ulcer [Unknown]
  - Skin lesion [Unknown]
